FAERS Safety Report 21602720 (Version 4)
Quarter: 2023Q4

REPORT INFORMATION
  Report Type: Spontaneous
  Country: PL (occurrence: PL)
  Receive Date: 20221116
  Receipt Date: 20231129
  Transmission Date: 20240110
  Serious: Yes (Other)
  Sender: FDA-Public Use
  Company Number: PL-SYNOPTIS-038-L-001

PATIENT
  Age: 43 Year
  Sex: Male

DRUGS (7)
  1. MEROPENEM [Suspect]
     Active Substance: MEROPENEM
     Indication: Urinary tract infection
     Dosage: 2000 MG, DAILY
     Route: 042
     Dates: start: 2012
  2. ERTAPENEM [Suspect]
     Active Substance: ERTAPENEM
     Indication: Urinary tract infection
     Dosage: 1000 MG, DAILY
     Route: 042
     Dates: start: 2012
  3. FOSFOMYCIN [Concomitant]
     Active Substance: FOSFOMYCIN
     Indication: Urinary tract infection
     Dosage: UNK
     Dates: start: 2012
  4. RIFAMPIN [Concomitant]
     Active Substance: RIFAMPIN
     Indication: Tuberculosis
     Dosage: UNK
  5. ISONIAZID [Concomitant]
     Active Substance: ISONIAZID
     Indication: Tuberculosis
     Dosage: UNK
  6. ETHAMBUTOL [Concomitant]
     Active Substance: ETHAMBUTOL HYDROCHLORIDE
     Indication: Tuberculosis
     Dosage: UNK
  7. PYRAZINAMIDE [Concomitant]
     Active Substance: PYRAZINAMIDE
     Indication: Tuberculosis
     Dosage: UNK

REACTIONS (2)
  - Neutropenia [Unknown]
  - Lymphopenia [Unknown]

NARRATIVE: CASE EVENT DATE: 20120101
